FAERS Safety Report 5165807-4 (Version None)
Quarter: 2006Q4

REPORT INFORMATION
  Report Type: 
  Country: None (occurrence: None)
  Receive Date: 20061128
  Receipt Date: 20061120
  Transmission Date: 20070319
  Serious: Yes (Hospitalization)
  Sender: FDA-Public Use
  Company Number: 2006BL006489

PATIENT
  Age: 83 Year
  Sex: Female

DRUGS (6)
  1. CARTEOLOL HYDROCHLORIDE [Suspect]
     Indication: GLAUCOMA
     Dosage: 1 DROP; DAILY; OPHTHALMIC
     Route: 047
  2. CARTEOLOL HYDROCHLORIDE [Suspect]
     Indication: HYPERTENSION
     Dosage: 1 DROP; DAILY; OPHTHALMIC
     Route: 047
  3. EFFEXOR [Suspect]
     Indication: DRUG USE FOR UNKNOWN INDICATION
     Dosage: ORAL
     Route: 048
     Dates: start: 20060701, end: 20060803
  4. XALATAN [Suspect]
     Indication: GLAUCOMA
     Dosage: 1 DROP; DAILY; OPHTHALMIC
     Route: 047
  5. HYZAAR [Suspect]
     Indication: HYPERTENSION
     Dosage: 1 DOSE FORM; DAILY; ORAL
     Route: 048
     Dates: end: 20061009
  6. CELIPROLOL (CELIPROLOL) [Suspect]
     Indication: HYPERTENSION
     Dosage: 200 MILLIGRAMS; DAILY; ORAL
     Route: 048
     Dates: end: 20061009

REACTIONS (2)
  - HAEMARTHROSIS [None]
  - IDIOPATHIC THROMBOCYTOPENIC PURPURA [None]
